FAERS Safety Report 5616574-9 (Version None)
Quarter: 2008Q1

REPORT INFORMATION
  Report Type: 
  Country: None (occurrence: None)
  Receive Date: 20080207
  Receipt Date: 20070801
  Transmission Date: 20080703
  Serious: No
  Sender: FDA-Public Use
  Company Number: A0667684A

PATIENT
  Age: 21 Year
  Sex: Female

DRUGS (2)
  1. PAXIL CR [Suspect]
     Indication: PANIC DISORDER
     Dosage: 12.5MG VARIABLE DOSE
     Route: 048
     Dates: start: 20000101
  2. NO CONCURRENT MEDICATIONS [Concomitant]

REACTIONS (9)
  - ANGER [None]
  - COLD SWEAT [None]
  - DELIVERY [None]
  - FEELING ABNORMAL [None]
  - HEAD DISCOMFORT [None]
  - HYPERHIDROSIS [None]
  - INCREASED TENDENCY TO BRUISE [None]
  - IRRITABILITY [None]
  - PHOTOSENSITIVITY REACTION [None]
